FAERS Safety Report 12680125 (Version 1)
Quarter: 2016Q3

REPORT INFORMATION
  Report Type: Spontaneous
  Country: ES (occurrence: ES)
  Receive Date: 20160824
  Receipt Date: 20160824
  Transmission Date: 20161109
  Serious: Yes (Hospitalization)
  Sender: FDA-Public Use
  Company Number: ES-GLAXOSMITHKLINE-B0699381A

PATIENT
  Age: 72 Year
  Sex: Female

DRUGS (6)
  1. ACENOCOUMAROL [Interacting]
     Active Substance: ACENOCOUMAROL
     Indication: CONGENITAL HEART VALVE DISORDER
     Dosage: UNK
     Route: 048
     Dates: end: 20100510
  2. INNOHEP [Interacting]
     Active Substance: TINZAPARIN SODIUM
     Indication: CARDIOVASCULAR DISORDER
     Dosage: 2000 IU, 1D
     Route: 058
     Dates: start: 20100507, end: 20100509
  3. BOI K [Concomitant]
     Active Substance: POTASSIUM ASCORBATE
     Dosage: UNK UNK, 1D
     Route: 048
  4. ZYLORIC [Concomitant]
     Active Substance: ALLOPURINOL
     Route: 048
  5. AUGMENTINE PLUS [Suspect]
     Active Substance: AMOXICILLIN\CLAVULANIC ACID
     Indication: RESPIRATORY TRACT INFECTION BACTERIAL
     Dosage: 1000 MG, TID
     Route: 048
     Dates: start: 20100507, end: 20100514
  6. SEGURIL [Concomitant]
     Active Substance: FUROSEMIDE
     Indication: CARDIAC FAILURE
     Dosage: 80 MG, 1D
     Route: 048

REACTIONS (2)
  - Drug interaction [Unknown]
  - Abdominal wall haematoma [Recovered/Resolved]

NARRATIVE: CASE EVENT DATE: 20100508
